FAERS Safety Report 16125012 (Version 1)
Quarter: 2019Q1

REPORT INFORMATION
  Report Type: Spontaneous
  Country: US (occurrence: US)
  Receive Date: 20190327
  Receipt Date: 20190327
  Transmission Date: 20190418
  Serious: Yes (Hospitalization, Other)
  Sender: FDA-Public Use
  Company Number: US-ASTRAZENECA-2019SE44357

PATIENT
  Age: 17280 Day
  Weight: 123.4 kg

DRUGS (11)
  1. NITROSTAT [Concomitant]
     Active Substance: NITROGLYCERIN
  2. ONGLYZA [Suspect]
     Active Substance: SAXAGLIPTIN HYDROCHLORIDE
     Dosage: 10.0MG UNKNOWN
     Route: 048
     Dates: start: 20111116
  3. FLUTICASONE. [Concomitant]
     Active Substance: FLUTICASONE
  4. PRAVASTATIN. [Concomitant]
     Active Substance: PRAVASTATIN
  5. RANOLAZINE. [Concomitant]
     Active Substance: RANOLAZINE
  6. MELOXICAM. [Concomitant]
     Active Substance: MELOXICAM
  7. FUROSEMIDE. [Concomitant]
     Active Substance: FUROSEMIDE
  8. ONGLYZA [Suspect]
     Active Substance: SAXAGLIPTIN HYDROCHLORIDE
     Dosage: 5.0MG UNKNOWN
     Route: 048
     Dates: start: 20120112, end: 20140111
  9. METOPROLOL. [Concomitant]
     Active Substance: METOPROLOL
  10. PLAVIX [Concomitant]
     Active Substance: CLOPIDOGREL BISULFATE
  11. ASPIRIN. [Concomitant]
     Active Substance: ASPIRIN

REACTIONS (2)
  - Coronary artery disease [Unknown]
  - Cardiac failure congestive [Unknown]

NARRATIVE: CASE EVENT DATE: 20120720
